FAERS Safety Report 11071584 (Version 3)
Quarter: 2015Q2

REPORT INFORMATION
  Report Type: Spontaneous
  Country: US (occurrence: US)
  Receive Date: 20150428
  Receipt Date: 20150519
  Transmission Date: 20150821
  Serious: Yes (Hospitalization)
  Sender: FDA-Public Use
  Company Number: US-AMGEN-USASP2015038916

PATIENT
  Age: 55 Year
  Sex: Female
  Weight: 79.37 kg

DRUGS (7)
  1. CORDRAN [Concomitant]
     Active Substance: FLURANDRENOLIDE
     Indication: PSORIASIS
     Dosage: UNK UNK,1 QD
     Route: 061
     Dates: start: 20081019, end: 20081218
  2. HUMIRA [Concomitant]
     Active Substance: ADALIMUMAB
     Dosage: UNK,1 OW
     Route: 058
     Dates: start: 20140321, end: 20140909
  3. TACLONEX [Concomitant]
     Active Substance: BETAMETHASONE DIPROPIONATE\CALCIPOTRIENE\CALCIPOTRIENE HYDRATE
     Indication: PSORIASIS
     Dosage: UNK UNK, 1 QD
     Route: 061
     Dates: start: 20081019, end: 20081102
  4. KENALOG [Concomitant]
     Active Substance: TRIAMCINOLONE ACETONIDE
     Indication: PSORIASIS
     Dosage: 5 MG QM,  UNK
     Route: 058
     Dates: start: 20080922, end: 20081218
  5. ENBREL [Suspect]
     Active Substance: ETANERCEPT
     Indication: PSORIASIS
     Dosage: 50 MG, 2 TIMES/WK
     Route: 058
     Dates: start: 20140909
  6. CLOBEX                             /00012002/ [Concomitant]
     Indication: PSORIASIS
     Dosage: UNK UNK, 1 BID
  7. TEMOVATE [Concomitant]
     Active Substance: CLOBETASOL PROPIONATE
     Indication: PSORIASIS
     Dosage: UNK UNK, 1 BID
     Route: 061
     Dates: start: 20080211, end: 20080502

REACTIONS (6)
  - Nail psoriasis [Not Recovered/Not Resolved]
  - Hospitalisation [Unknown]
  - Pruritus [Recovering/Resolving]
  - Skin exfoliation [Recovering/Resolving]
  - Incorrect dose administered [Unknown]
  - Psoriasis [Unknown]

NARRATIVE: CASE EVENT DATE: 20080922
